FAERS Safety Report 15073704 (Version 2)
Quarter: 2018Q4

REPORT INFORMATION
  Report Type: Spontaneous
  Country: US (occurrence: US)
  Receive Date: 20180627
  Receipt Date: 20181120
  Transmission Date: 20190204
  Serious: Yes (Other)
  Sender: FDA-Public Use
  Company Number: PHEH2018US025884

PATIENT
  Age: 92 Year
  Sex: Female

DRUGS (1)
  1. VOTRIENT [Suspect]
     Active Substance: PAZOPANIB HYDROCHLORIDE
     Indication: RENAL CANCER
     Dosage: 200 MG, QD
     Route: 048
     Dates: start: 20180419

REACTIONS (7)
  - Decreased appetite [Unknown]
  - Abdominal pain [Unknown]
  - Renal impairment [Unknown]
  - Back pain [Unknown]
  - Diarrhoea [Unknown]
  - Myalgia [Unknown]
  - Chromaturia [Unknown]

NARRATIVE: CASE EVENT DATE: 201810
